FAERS Safety Report 9726516 (Version 1)
Quarter: 2013Q4

REPORT INFORMATION
  Report Type: Spontaneous
  Country: GB (occurrence: None)
  Receive Date: 20131129
  Receipt Date: 20131129
  Transmission Date: 20140711
  Serious: Yes (Hospitalization, Disabling)
  Sender: FDA-Public Use
  Company Number: INT_00343_2013

PATIENT
  Age: 60 Year
  Sex: Female

DRUGS (14)
  1. MEROPENEM (MEROPENEM) [Suspect]
     Indication: VAGINAL ABSCESS
     Dates: start: 20131026
  2. ADCAL D3 [Concomitant]
  3. ALENDRONATE [Concomitant]
  4. CHLORPHENAMINE [Concomitant]
  5. CIMETIDINE [Concomitant]
  6. DARBEPOETIN ALFA [Concomitant]
  7. FLUCONAZOLE (UNKNOWN) [Concomitant]
  8. LINEZOLID (UNKNOWN) [Concomitant]
  9. METRONIDAZOLE (UNKNOWN) [Concomitant]
  10. OMEPRAZOLE (UNKNOWN) [Concomitant]
  11. PREGABALIN (UNKNOWN) [Concomitant]
  12. RANITIDINE (UNKNOWN) [Concomitant]
  13. TOLTERODINE (IUNKNOWN) [Concomitant]
  14. VANCOMYCIN (UNKNOWN) [Concomitant]

REACTIONS (2)
  - Rash generalised [None]
  - Quality of life decreased [None]
